FAERS Safety Report 18041425 (Version 1)
Quarter: 2020Q3

REPORT INFORMATION
  Report Type: Spontaneous
  Country: US (occurrence: US)
  Receive Date: 20200719
  Receipt Date: 20200719
  Transmission Date: 20201103
  Serious: No
  Sender: FDA-Public Use
  Company Number: US-AMGEN-USA-20191205795

PATIENT
  Age: 78 Year
  Sex: Male

DRUGS (1)
  1. OTEZLA [Suspect]
     Active Substance: APREMILAST
     Indication: ACTINIC KERATOSIS
     Dosage: 30 MILLIGRAM, BID
     Route: 048

REACTIONS (3)
  - Vomiting [Unknown]
  - Diarrhoea [Unknown]
  - Off label use [Unknown]
